FAERS Safety Report 18762355 (Version 2)
Quarter: 2021Q2

REPORT INFORMATION
  Report Type: Spontaneous
  Country: BR (occurrence: BR)
  Receive Date: 20210120
  Receipt Date: 20210416
  Transmission Date: 20210717
  Serious: Yes (Hospitalization, Other)
  Sender: FDA-Public Use
  Company Number: BR-ABBVIE-21K-020-3731619-00

PATIENT
  Age: 45 Year
  Sex: Female
  Weight: 56 kg

DRUGS (5)
  1. HUMIRA [Suspect]
     Active Substance: ADALIMUMAB
     Indication: CROHN^S DISEASE
     Route: 058
     Dates: start: 2015, end: 2015
  2. HUMIRA [Suspect]
     Active Substance: ADALIMUMAB
     Route: 058
     Dates: start: 2018
  3. HUMIRA [Suspect]
     Active Substance: ADALIMUMAB
     Route: 058
  4. HUMIRA [Suspect]
     Active Substance: ADALIMUMAB
     Route: 058
     Dates: start: 2015, end: 2015
  5. MESALAZINE [Concomitant]
     Active Substance: MESALAMINE
     Indication: CROHN^S DISEASE
     Route: 048
     Dates: start: 2006

REACTIONS (24)
  - Gastrointestinal inflammation [Recovered/Resolved]
  - Visual impairment [Not Recovered/Not Resolved]
  - General symptom [Not Recovered/Not Resolved]
  - Occult blood [Recovered/Resolved]
  - Abdominal pain lower [Recovered/Resolved]
  - Intestinal perforation [Recovered/Resolved]
  - Purulence [Recovered/Resolved]
  - Diarrhoea [Recovered/Resolved]
  - Gastrointestinal disorder [Recovered/Resolved]
  - Gastrointestinal disorder [Recovering/Resolving]
  - Faecaloma [Recovered/Resolved]
  - Intestinal perforation [Recovered/Resolved]
  - Anaemia [Recovered/Resolved]
  - Rash macular [Not Recovered/Not Resolved]
  - Purulence [Recovered/Resolved]
  - Procedural pain [Recovered/Resolved]
  - Visual impairment [Not Recovered/Not Resolved]
  - Product storage error [Unknown]
  - Swelling [Recovered/Resolved]
  - Anaemia [Recovered/Resolved]
  - Abdominal pain [Recovered/Resolved]
  - Malaise [Recovered/Resolved]
  - Rash macular [Not Recovered/Not Resolved]
  - Pain [Recovered/Resolved]

NARRATIVE: CASE EVENT DATE: 2018
